FAERS Safety Report 18596703 (Version 1)
Quarter: 2020Q4

REPORT INFORMATION
  Report Type: Spontaneous
  Country: GB (occurrence: GB)
  Receive Date: 20201209
  Receipt Date: 20201209
  Transmission Date: 20210114
  Serious: Yes (Disabling)
  Sender: FDA-Public Use
  Company Number: GB-TEVA-2020-GB-1855452

PATIENT
  Age: 29 Year
  Sex: Female
  Weight: 64 kg

DRUGS (11)
  1. FOSTAIR [Concomitant]
     Active Substance: BECLOMETHASONE\FORMOTEROL
     Dosage: 4 DOSAGE FORMS
     Route: 055
     Dates: start: 20200924
  2. PHENOXYMETHYLPENICILLIN [Concomitant]
     Active Substance: PENICILLIN V
     Dosage: 8 DOSAGE FORMS
     Dates: start: 20201014, end: 20201019
  3. TRAMADOL. [Suspect]
     Active Substance: TRAMADOL
     Dosage: 50 MG
     Route: 048
     Dates: start: 20201109
  4. CLENIL MODULITE [Concomitant]
     Active Substance: BECLOMETHASONE DIPROPIONATE
     Dosage: 2 DOSAGE FORMS
     Route: 055
     Dates: start: 20200508, end: 20200924
  5. ARIPIPRAZOLE. [Concomitant]
     Active Substance: ARIPIPRAZOLE
     Dosage: 1 DOSAGE FORMS
     Dates: start: 20201111
  6. ONDANSETRON [Concomitant]
     Active Substance: ONDANSETRON
     Dosage: 2 DOSAGE FORMS
     Dates: start: 20201111
  7. SALBUTAMOL [Concomitant]
     Active Substance: ALBUTEROL
     Dosage: 2 DOSAGE FORMS
     Route: 055
     Dates: start: 20200508
  8. PARACETAMOL [Concomitant]
     Active Substance: ACETAMINOPHEN
     Dosage: ONE TO TWO TO BE TAKEN FOUR TIMES A DAY AS REQU...
     Dates: start: 20201109
  9. FENBID [Concomitant]
     Active Substance: IBUPROFEN
     Indication: PAIN
     Dosage: APPLY, UNIT DOSE: 3 DOSAGE FORMS
     Dates: start: 20201109
  10. FEXOFENADINE [Concomitant]
     Active Substance: FEXOFENADINE HYDROCHLORIDE
     Indication: HYPERSENSITIVITY
     Dosage: TO SUPPRESS ALLERGIC SYMPTOMS, UNIT DOSE: 1 DOSAGE FORMS
     Dates: start: 20201111
  11. SPIRIVA [Concomitant]
     Active Substance: TIOTROPIUM BROMIDE MONOHYDRATE
     Dosage: 2 DOSAGE FORMS
     Route: 055
     Dates: start: 20201111

REACTIONS (4)
  - Muscular weakness [Not Recovered/Not Resolved]
  - Pruritus [Not Recovered/Not Resolved]
  - Vomiting [Not Recovered/Not Resolved]
  - Tremor [Not Recovered/Not Resolved]

NARRATIVE: CASE EVENT DATE: 20201111
